FAERS Safety Report 7401188-0 (Version None)
Quarter: 2011Q2

REPORT INFORMATION
  Report Type: 
  Country: None (occurrence: None)
  Receive Date: 20110407
  Receipt Date: 20110331
  Transmission Date: 20111010
  Serious: Yes (Other)
  Sender: FDA-Public Use
  Company Number: GB-B.I. PHARMACEUTICALS,INC./RIDGEFIELD-2011-BP-10065YA

PATIENT
  Age: 80 Year
  Sex: Male
  Weight: 91 kg

DRUGS (15)
  1. BISOPROLOL (BISOPROLOL) [Concomitant]
     Dates: start: 20110110, end: 20110303
  2. LEVOTHYROXINE (LEVOTHYROXINE) [Concomitant]
     Dates: start: 20110307
  3. FELODIPINE [Concomitant]
     Dates: start: 20110226
  4. CETRABEN (LIGHT LIQUID PARAFFIN) [Concomitant]
     Dates: start: 20110226
  5. TAMSULOSIN HCL [Suspect]
     Dates: start: 20110314
  6. BISOPROLOL (BISOPROLOL) [Concomitant]
     Dates: start: 20110307
  7. LEVOTHYROXINE (LEVOTHYROXINE) [Concomitant]
     Dates: start: 20101206, end: 20110103
  8. LOSARTAN POTASSIUM [Concomitant]
     Dates: start: 20110307
  9. LOSARTAN POTASSIUM [Concomitant]
     Dates: start: 20101206, end: 20110103
  10. LOSARTAN POTASSIUM [Concomitant]
     Dates: start: 20110110, end: 20110303
  11. ASPIRIN [Concomitant]
     Dates: start: 20110110, end: 20110303
  12. ASPIRIN [Concomitant]
     Dates: start: 20110307
  13. BISOPROLOL (BISOPROLOL) [Concomitant]
     Dates: start: 20101206, end: 20110103
  14. ASPIRIN [Concomitant]
     Dates: start: 20101206, end: 20110103
  15. LEVOTHYROXINE (LEVOTHYROXINE) [Concomitant]
     Dates: start: 20110110, end: 20110303

REACTIONS (2)
  - LOSS OF BLADDER SENSATION [None]
  - URINARY INCONTINENCE [None]
